FAERS Safety Report 8485419-4 (Version None)
Quarter: 2012Q3

REPORT INFORMATION
  Report Type: 
  Country: None (occurrence: None)
  Receive Date: 20120703
  Receipt Date: 20120628
  Transmission Date: 20120928
  Serious: Yes (Hospitalization)
  Sender: FDA-Public Use
  Company Number: PHHY2012BR056279

PATIENT
  Age: 64 Year
  Sex: Male

DRUGS (4)
  1. CLOZAPINE [Suspect]
     Indication: DEMENTIA
     Dosage: 100 MG, DAILY
     Route: 048
  2. EXELON [Suspect]
     Indication: DEMENTIA
     Dosage: 2 TIMES A DAY
     Route: 048
  3. EXELON [Suspect]
     Indication: DEMENTIA
     Dosage: 4.6 MG, DAILY
     Route: 062
     Dates: start: 20110101
  4. EXELON [Suspect]
     Dosage: 9.5 MG, DAILY
     Route: 062

REACTIONS (2)
  - CEREBROVASCULAR ACCIDENT [None]
  - APHASIA [None]
